FAERS Safety Report 15088066 (Version 1)
Quarter: 2018Q2

REPORT INFORMATION
  Report Type: Spontaneous
  Country: IT (occurrence: IT)
  Receive Date: 20180629
  Receipt Date: 20180629
  Transmission Date: 20180711
  Serious: Yes (Hospitalization, Other)
  Sender: FDA-Public Use
  Company Number: IT-VISTAPHARM, INC.-VER201806-000722

PATIENT
  Sex: Male

DRUGS (1)
  1. HYDROCODONE AND ACETAMINOPHEN [Suspect]
     Active Substance: ACETAMINOPHEN\HYDROCODONE
     Indication: PRODUCT USED FOR UNKNOWN INDICATION
     Dosage: 2 G FOR THE FIRST DAY AND 3 G FOR THE NEXT 2 DAYS

REACTIONS (2)
  - Rhabdomyolysis [Recovering/Resolving]
  - Myoglobinuria [Recovering/Resolving]
